FAERS Safety Report 7577327-8 (Version None)
Quarter: 2011Q2

REPORT INFORMATION
  Report Type: 
  Country: None (occurrence: None)
  Receive Date: 20110628
  Receipt Date: 20110118
  Transmission Date: 20111010
  Serious: Yes (Hospitalization, Other)
  Sender: FDA-Public Use
  Company Number: US-BAYER-201036686NA

PATIENT
  Age: 28 Year
  Sex: Female
  Weight: 108.84 kg

DRUGS (10)
  1. LYRICA [Concomitant]
     Dosage: 150 MG, UNK
  2. YAZ [Suspect]
     Indication: CONTRACEPTION
     Dosage: UNK
  3. YAZ [Suspect]
     Indication: PREMENSTRUAL SYNDROME
  4. CYCLOBENZAPRINE HYDROCHLORIDE [Concomitant]
     Dosage: 15 MG, UNK
     Route: 048
  5. PERCOCET [Concomitant]
     Dosage: UNK UNK, PRN5/325MG
  6. COLACE [Concomitant]
  7. LORTAB [Concomitant]
     Dosage: 7.5 MG, UNK
  8. FLECTOR [Concomitant]
     Route: 061
  9. LIDODERM [Concomitant]
     Route: 061
  10. ROBAXIN [Concomitant]
     Dosage: 750 MG, BID
     Route: 048

REACTIONS (4)
  - CHOLELITHIASIS [None]
  - GALLBLADDER CHOLESTEROLOSIS [None]
  - GALLBLADDER DISORDER [None]
  - CHOLECYSTITIS CHRONIC [None]
